FAERS Safety Report 15008382 (Version 10)
Quarter: 2018Q3

REPORT INFORMATION
  Report Type: Report from Study
  Country: US (occurrence: US)
  Receive Date: 20180613
  Receipt Date: 20180928
  Transmission Date: 20181010
  Serious: Yes (Hospitalization, Other)
  Sender: FDA-Public Use
  Company Number: US-GILEAD-2018-0340379

PATIENT
  Age: 58 Year
  Sex: Female

DRUGS (13)
  1. FLOLAN [Concomitant]
     Active Substance: EPOPROSTENOL SODIUM
  2. EPOPROSTENOL. [Concomitant]
     Active Substance: EPOPROSTENOL
  3. FUROSEMIDE. [Concomitant]
     Active Substance: FUROSEMIDE
  4. PREGABALIN. [Concomitant]
     Active Substance: PREGABALIN
  5. TYVASO [Suspect]
     Active Substance: TREPROSTINIL
     Indication: PRODUCT USED FOR UNKNOWN INDICATION
     Dosage: UNK
     Route: 065
  6. REVATIO [Concomitant]
     Active Substance: SILDENAFIL CITRATE
  7. VITAMIN D                          /00107901/ [Concomitant]
     Active Substance: ERGOCALCIFEROL
  8. AMBRISENTAN [Suspect]
     Active Substance: AMBRISENTAN
     Indication: PULMONARY ARTERIAL HYPERTENSION
     Dosage: 10 MG, QD
     Route: 048
     Dates: start: 20121220
  9. VELETRI [Concomitant]
     Active Substance: EPOPROSTENOL
  10. POTASSIUM CHLORIDE. [Concomitant]
     Active Substance: POTASSIUM CHLORIDE
  11. ALPRAZOLAM. [Concomitant]
     Active Substance: ALPRAZOLAM
  12. REMODULIN [Concomitant]
     Active Substance: TREPROSTINIL
  13. TRAMADOL. [Concomitant]
     Active Substance: TRAMADOL

REACTIONS (23)
  - Pulmonary hypertension [Not Recovered/Not Resolved]
  - Oxygen saturation decreased [Recovering/Resolving]
  - Nervous system disorder [Not Recovered/Not Resolved]
  - Blood pressure increased [Not Recovered/Not Resolved]
  - Head discomfort [Not Recovered/Not Resolved]
  - Diarrhoea [Not Recovered/Not Resolved]
  - Musculoskeletal pain [Unknown]
  - Headache [Recovered/Resolved]
  - Cardiovascular disorder [Not Recovered/Not Resolved]
  - Paraesthesia [Not Recovered/Not Resolved]
  - Fatigue [Not Recovered/Not Resolved]
  - Dyspnoea [Not Recovered/Not Resolved]
  - Headache [Not Recovered/Not Resolved]
  - Neck pain [Unknown]
  - Presyncope [Recovering/Resolving]
  - Swelling face [Not Recovered/Not Resolved]
  - Catheter placement [Unknown]
  - Arthritis [Not Recovered/Not Resolved]
  - Palpitations [Unknown]
  - Chills [Not Recovered/Not Resolved]
  - Dizziness [Recovering/Resolving]
  - Hypoaesthesia [Not Recovered/Not Resolved]
  - Eyelid ptosis [Recovered/Resolved]

NARRATIVE: CASE EVENT DATE: 20180823
